FAERS Safety Report 13157817 (Version 1)
Quarter: 2017Q1

REPORT INFORMATION
  Report Type: Spontaneous
  Country: US (occurrence: US)
  Receive Date: 20170127
  Receipt Date: 20170127
  Transmission Date: 20170428
  Serious: No
  Sender: FDA-Public Use
  Company Number: US-JNJFOC-20170110399

PATIENT
  Age: 23 Year
  Sex: Male
  Weight: 117.94 kg

DRUGS (1)
  1. REMICADE [Suspect]
     Active Substance: INFLIXIMAB
     Indication: PSORIATIC ARTHROPATHY
     Route: 042

REACTIONS (9)
  - Vocal cord disorder [Unknown]
  - Gastrooesophageal reflux disease [Unknown]
  - Reflux laryngitis [Unknown]
  - Off label use [Unknown]
  - Acute sinusitis [Recovered/Resolved]
  - Stridor [Unknown]
  - Vocal cord disorder [Unknown]
  - Asthma [Unknown]
  - Product use issue [Unknown]

NARRATIVE: CASE EVENT DATE: 20161027
